FAERS Safety Report 9671573 (Version 1)
Quarter: 2013Q4

REPORT INFORMATION
  Report Type: Spontaneous
  Country: US (occurrence: US)
  Receive Date: 20131106
  Receipt Date: 20131106
  Transmission Date: 20140711
  Serious: No
  Sender: FDA-Public Use
  Company Number: US-PFIZER INC-2013315731

PATIENT
  Sex: Female

DRUGS (2)
  1. RELPAX [Suspect]
     Indication: MIGRAINE
     Dosage: 40 MG, UNK
     Route: 048
  2. ADVIL [Concomitant]
     Indication: MIGRAINE
     Dosage: UNK

REACTIONS (2)
  - Pain [Unknown]
  - Muscular weakness [Unknown]
